FAERS Safety Report 8519167-9 (Version None)
Quarter: 2012Q3

REPORT INFORMATION
  Report Type: 
  Country: None (occurrence: None)
  Receive Date: 20120709
  Receipt Date: 20120621
  Transmission Date: 20120928
  Serious: Yes (Hospitalization, Other)
  Sender: FDA-Public Use
  Company Number: CIP11001874

PATIENT
  Age: 65 Year
  Sex: Female

DRUGS (2)
  1. FOSAMAX [Suspect]
     Indication: OSTEOPOROSIS
     Dosage: 70 MG ONCE WEEKLY, ORAL
     Route: 048
     Dates: start: 20050301, end: 20100401
  2. ACTONEL [Suspect]
     Indication: OSTEOPOROSIS
     Dosage: 35 MG ONCE WEEKLY, ORAL
     Route: 048
     Dates: start: 20030101, end: 20050301

REACTIONS (7)
  - LOW TURNOVER OSTEOPATHY [None]
  - PAIN IN EXTREMITY [None]
  - FEMUR FRACTURE [None]
  - PAIN [None]
  - TOXICITY TO VARIOUS AGENTS [None]
  - OSTEOPENIA [None]
  - STRESS FRACTURE [None]
